FAERS Safety Report 4463881-1 (Version None)
Quarter: 2004Q3

REPORT INFORMATION
  Report Type: 
  Country: None (occurrence: None)
  Receive Date: 20040929
  Receipt Date: 20040916
  Transmission Date: 20050211
  Serious: Yes (Death)
  Sender: FDA-Public Use
  Company Number: 2004067027

PATIENT
  Age: 70 Year
  Sex: Female

DRUGS (2)
  1. FLUCONAZOLE [Suspect]
     Indication: ILL-DEFINED DISORDER
     Dosage: 50 MG (50 MG, 1 IN 1 D)
     Dates: end: 20030101
  2. FLUINDIONE (FLUINDIONE) [Concomitant]

REACTIONS (2)
  - CEREBROVASCULAR DISORDER [None]
  - NERVOUS SYSTEM DISORDER [None]
